FAERS Safety Report 11087251 (Version 3)
Quarter: 2015Q4

REPORT INFORMATION
  Report Type: Report from Study
  Country: PT (occurrence: PT)
  Receive Date: 20150504
  Receipt Date: 20151105
  Transmission Date: 20160304
  Serious: Yes (Other)
  Sender: FDA-Public Use
  Company Number: PT-BIOGENIDEC-2015BI057284

PATIENT
  Age: 51 Year
  Sex: Female

DRUGS (9)
  1. MYFENAX (NOS) [Concomitant]
     Dates: start: 2004
  2. FOSAVANCE [Concomitant]
     Active Substance: ALENDRONATE SODIUM\CHOLECALCIFEROL
  3. PANTOPRAZOLE [Concomitant]
     Active Substance: PANTOPRAZOLE SODIUM
  4. AVONEX [Suspect]
     Active Substance: INTERFERON BETA-1A
     Indication: RELAPSING-REMITTING MULTIPLE SCLEROSIS
     Route: 030
     Dates: start: 20131101
  5. DAFLON [Concomitant]
     Active Substance: DIOSMIN\HESPERIDIN
  6. SUCRALFATE. [Concomitant]
     Active Substance: SUCRALFATE
  7. COLCHICINE. [Concomitant]
     Active Substance: COLCHICINE
  8. IDEOS [Concomitant]
     Active Substance: CALCIUM CARBONATE\CHOLECALCIFEROL
  9. METOCLOPRAMIDE. [Concomitant]
     Active Substance: METOCLOPRAMIDE

REACTIONS (8)
  - Osteoporosis [Not Recovered/Not Resolved]
  - Injection site haematoma [Recovered/Resolved]
  - Anxiety [Not Recovered/Not Resolved]
  - Haemoptysis [Unknown]
  - Depression [Not Recovered/Not Resolved]
  - Lung disorder [Unknown]
  - Tuberculosis [Unknown]
  - Multiple sclerosis [Not Recovered/Not Resolved]

NARRATIVE: CASE EVENT DATE: 201504
